FAERS Safety Report 8800186 (Version 1)
Quarter: 2012Q4

REPORT INFORMATION
  Report Type: 
  Country: FR (occurrence: FR)
  Receive Date: 20120921
  Receipt Date: 20120921
  Transmission Date: 20130627
  Serious: Yes (Other)
  Sender: FDA-Public Use
  Company Number: FR-JNJFOC-20120908543

PATIENT
  Sex: Female

DRUGS (1)
  1. XARELTO [Suspect]
     Indication: MITRAL VALVE REPLACEMENT
     Route: 048
     Dates: end: 20120906

REACTIONS (3)
  - Faeces discoloured [Unknown]
  - Hiatus hernia [None]
  - Wrong drug administered [None]
